FAERS Safety Report 9860320 (Version 1)
Quarter: 2014Q1

REPORT INFORMATION
  Report Type: Spontaneous
  Country: US (occurrence: US)
  Receive Date: 20140202
  Receipt Date: 20140202
  Transmission Date: 20141002
  Serious: Yes (Death)
  Sender: FDA-Public Use
  Company Number: CHPA2014US001443

PATIENT
  Age: 61 Year
  Sex: Male

DRUGS (2)
  1. CHLORPHENIRAMINE [Suspect]
  2. CARBON MONOXIDE [Suspect]

REACTIONS (1)
  - Environmental exposure [Fatal]
